FAERS Safety Report 9103402 (Version 1)
Quarter: 2013Q1

REPORT INFORMATION
  Report Type: Spontaneous
  Country: US (occurrence: US)
  Receive Date: 20130219
  Receipt Date: 20130219
  Transmission Date: 20140127
  Serious: Yes (Hospitalization)
  Sender: FDA-Public Use
  Company Number: US-GLAXOSMITHKLINE-A0849267A

PATIENT
  Age: 70 Year
  Sex: Female

DRUGS (1)
  1. AVANDIA [Suspect]
     Indication: DIABETES MELLITUS
     Dosage: 4MG PER DAY
     Route: 048
     Dates: start: 20051205, end: 20070409

REACTIONS (5)
  - Transient ischaemic attack [Not Recovered/Not Resolved]
  - Asthenia [Unknown]
  - Fluid retention [Unknown]
  - Cardiac disorder [Unknown]
  - Tremor [Unknown]
